FAERS Safety Report 14007581 (Version 2)
Quarter: 2017Q4

REPORT INFORMATION
  Report Type: Spontaneous
  Country: US (occurrence: US)
  Receive Date: 20170925
  Receipt Date: 20171006
  Transmission Date: 20180321
  Serious: Yes (Hospitalization, Other)
  Sender: FDA-Public Use
  Company Number: US-JNJFOC-20170921411

PATIENT
  Age: 56 Year
  Sex: Female
  Weight: 86.18 kg

DRUGS (10)
  1. FENTANYL TRANSDERMAL SYSTEM [Suspect]
     Active Substance: FENTANYL
     Indication: NEURALGIA
     Route: 062
  2. FENTANYL. [Suspect]
     Active Substance: FENTANYL
     Indication: BACK PAIN
     Route: 062
  3. NORCO [Concomitant]
     Active Substance: ACETAMINOPHEN\HYDROCODONE BITARTRATE
     Indication: BREAKTHROUGH PAIN
     Dosage: EVERY 6 TO 8 HOURS
     Route: 048
  4. FENTANYL TRANSDERMAL SYSTEM [Suspect]
     Active Substance: FENTANYL
     Indication: NECK PAIN
     Route: 062
  5. BACLOFEN. [Concomitant]
     Active Substance: BACLOFEN
     Indication: MUSCLE SPASMS
     Route: 048
  6. FENTANYL. [Suspect]
     Active Substance: FENTANYL
     Indication: NECK PAIN
     Route: 062
  7. XANAX [Concomitant]
     Active Substance: ALPRAZOLAM
     Indication: ANXIETY
     Dosage: AS NEEDED
     Route: 065
     Dates: start: 2000
  8. FENTANYL TRANSDERMAL SYSTEM [Suspect]
     Active Substance: FENTANYL
     Indication: BACK PAIN
     Route: 062
  9. FENTANYL. [Suspect]
     Active Substance: FENTANYL
     Indication: NEURALGIA
     Route: 062
  10. HALCION [Concomitant]
     Active Substance: TRIAZOLAM
     Dosage: 1/2 TABLET TO A WHOLE TABLET AT BEDTIME AS NEEDED
     Route: 065

REACTIONS (8)
  - Non-Hodgkin^s lymphoma recurrent [Unknown]
  - Drug ineffective [Recovered/Resolved]
  - Memory impairment [Not Recovered/Not Resolved]
  - Transient ischaemic attack [Unknown]
  - Product availability issue [Unknown]
  - Weight decreased [Not Recovered/Not Resolved]
  - Drug dose omission [Unknown]
  - Visual impairment [Not Recovered/Not Resolved]

NARRATIVE: CASE EVENT DATE: 2016
